FAERS Safety Report 5720139-8 (Version None)
Quarter: 2008Q2

REPORT INFORMATION
  Report Type: 
  Country: None (occurrence: None)
  Receive Date: 20080428
  Receipt Date: 20071129
  Transmission Date: 20081010
  Serious: No
  Sender: FDA-Public Use
  Company Number: US-AMGEN-US254713

PATIENT
  Sex: Male
  Weight: 68 kg

DRUGS (1)
  1. SENSIPAR [Suspect]
     Indication: HYPERPARATHYROIDISM SECONDARY
     Route: 048
     Dates: start: 20071115, end: 20071119

REACTIONS (2)
  - PHARYNGEAL OEDEMA [None]
  - SWELLING FACE [None]
